FAERS Safety Report 5833819-0 (Version None)
Quarter: 2008Q3

REPORT INFORMATION
  Report Type: 
  Country: None (occurrence: None)
  Receive Date: 20080805
  Receipt Date: 20080725
  Transmission Date: 20090109
  Serious: Yes (Hospitalization)
  Sender: FDA-Public Use
  Company Number: NL-JNJFOC-20061001062

PATIENT
  Sex: Female
  Weight: 70 kg

DRUGS (6)
  1. REMICADE [Suspect]
     Indication: CROHN'S DISEASE
     Route: 042
  2. NEXIUM [Concomitant]
     Indication: GASTROOESOPHAGEAL REFLUX DISEASE
  3. CALCICHEW [Concomitant]
  4. IMURAN [Concomitant]
     Indication: CROHN'S DISEASE
  5. PREDNISONE [Concomitant]
  6. SALOFALK [Concomitant]

REACTIONS (2)
  - ANAL ABSCESS [None]
  - ANAL FISTULA [None]
